FAERS Safety Report 9419023 (Version 1)
Quarter: 2013Q3

REPORT INFORMATION
  Report Type: Spontaneous
  Country: US (occurrence: US)
  Receive Date: 20130725
  Receipt Date: 20130725
  Transmission Date: 20140515
  Serious: Yes (Life-Threatening, Hospitalization)
  Sender: FDA-Public Use
  Company Number: PHHY2011US63738

PATIENT
  Age: 71 Year
  Sex: Female

DRUGS (2)
  1. RECLAST [Suspect]
     Dosage: UNK UKN, UNK
     Route: 042
     Dates: start: 20110701
  2. HORMONES [Concomitant]
     Dosage: TAKEN EVERY DAY

REACTIONS (12)
  - Gastrointestinal disorder [Unknown]
  - Back disorder [Unknown]
  - Hypoaesthesia [Unknown]
  - Nausea [Unknown]
  - Paraesthesia [Unknown]
  - Myalgia [Unknown]
  - Headache [Unknown]
  - Diarrhoea [Unknown]
  - Influenza like illness [Unknown]
  - Local swelling [Unknown]
  - Arthralgia [Unknown]
  - Pain [Unknown]
